FAERS Safety Report 12449282 (Version 1)
Quarter: 2016Q2

REPORT INFORMATION
  Report Type: Spontaneous
  Country: GR (occurrence: GR)
  Receive Date: 20160608
  Receipt Date: 20160608
  Transmission Date: 20160815
  Serious: Yes (Disabling)
  Sender: FDA-Public Use
  Company Number: GR-GILEAD-2016-0216611

PATIENT
  Age: 62 Year
  Sex: Male
  Weight: 88 kg

DRUGS (4)
  1. ZYDELIG [Suspect]
     Active Substance: IDELALISIB
     Indication: CHRONIC LYMPHOCYTIC LEUKAEMIA REFRACTORY
     Route: 048
     Dates: start: 20160318, end: 20160426
  2. HIZENTRA [Concomitant]
     Active Substance: HUMAN IMMUNOGLOBULIN G
     Indication: HYPOGAMMAGLOBULINAEMIA
     Dosage: 30 G, Q1MONTH
     Dates: start: 2008
  3. SINTROM [Concomitant]
     Active Substance: ACENOCOUMAROL
     Indication: PULMONARY EMBOLISM
     Route: 048
     Dates: start: 200801
  4. EUCREAS [Concomitant]
     Active Substance: METFORMIN HYDROCHLORIDE\VILDAGLIPTIN
     Indication: TYPE 2 DIABETES MELLITUS

REACTIONS (2)
  - Arthralgia [Unknown]
  - Myalgia [Unknown]

NARRATIVE: CASE EVENT DATE: 20160416
